FAERS Safety Report 5742592-6 (Version None)
Quarter: 2008Q2

REPORT INFORMATION
  Report Type: 
  Country: None (occurrence: None)
  Receive Date: 20080515
  Receipt Date: 20080515
  Transmission Date: 20081010
  Serious: Yes (Life-Threatening)
  Sender: FDA-Public Use
  Company Number: None

PATIENT
  Sex: Male
  Weight: 130.1823 kg

DRUGS (3)
  1. DIGOXIN [Suspect]
     Indication: ARRHYTHMIA
     Dosage: 1 TAB A DAY
     Dates: start: 20070131, end: 20071018
  2. DIGOXIN [Suspect]
     Indication: ARRHYTHMIA
     Dosage: 1 TAB A DAY
     Dates: start: 20080222, end: 20080331
  3. DIGOXIN [Suspect]
     Dates: start: 20080506

REACTIONS (4)
  - ASTHENIA [None]
  - HYPERHIDROSIS [None]
  - NAUSEA [None]
  - TREMOR [None]
